FAERS Safety Report 12472900 (Version 1)
Quarter: 2016Q2

REPORT INFORMATION
  Report Type: Spontaneous
  Country: US (occurrence: US)
  Receive Date: 20160616
  Receipt Date: 20160616
  Transmission Date: 20160815
  Serious: No
  Sender: FDA-Public Use
  Company Number: US-JAZZ-2015-US-020108

PATIENT
  Sex: Male

DRUGS (7)
  1. XYREM [Suspect]
     Active Substance: SODIUM OXYBATE
     Dosage: 3 G, SECOND DOSE
     Route: 048
     Dates: start: 201405
  2. TRIAZOLAM. [Concomitant]
     Active Substance: TRIAZOLAM
     Indication: PRODUCT USED FOR UNKNOWN INDICATION
     Dosage: UNK
     Dates: start: 20151119
  3. XYREM [Suspect]
     Active Substance: SODIUM OXYBATE
     Dosage: DOSE ADJUSTMENTS
     Route: 048
     Dates: start: 200911, end: 201405
  4. CYMBALTA [Concomitant]
     Active Substance: DULOXETINE HYDROCHLORIDE
     Indication: PRODUCT USED FOR UNKNOWN INDICATION
     Dosage: UNK
     Dates: start: 20151119
  5. XYREM [Suspect]
     Active Substance: SODIUM OXYBATE
     Indication: ARTHRITIS
     Dosage: 4.5 G, BID
     Route: 048
     Dates: start: 200906, end: 200911
  6. ADDERALL [Concomitant]
     Active Substance: AMPHETAMINE ASPARTATE\AMPHETAMINE SULFATE\DEXTROAMPHETAMINE SACCHARATE\DEXTROAMPHETAMINE SULFATE
     Indication: PRODUCT USED FOR UNKNOWN INDICATION
     Dosage: UNK
     Dates: start: 20151119
  7. XYREM [Suspect]
     Active Substance: SODIUM OXYBATE
     Dosage: 7 G, FIRST DOSE
     Route: 048
     Dates: start: 201405

REACTIONS (3)
  - Hypertension [Unknown]
  - Hand fracture [Unknown]
  - Ill-defined disorder [Recovering/Resolving]
